FAERS Safety Report 6591230-1 (Version None)
Quarter: 2010Q1

REPORT INFORMATION
  Report Type: 
  Country: None (occurrence: None)
  Receive Date: 20100219
  Receipt Date: 20100212
  Transmission Date: 20100710
  Serious: Yes (Disabling)
  Sender: FDA-Public Use
  Company Number: PHHO2010KR02406

PATIENT
  Sex: Male
  Weight: 80.6 kg

DRUGS (6)
  1. ACLASTA/ZOLEDRONATE T29581+A+ [Suspect]
     Indication: OSTEONECROSIS
     Dosage: ONCE-YEARLY ADMINISTRATION OF 5MG ZOLEDRONIC ACID
     Route: 042
     Dates: start: 20090702
  2. CALCIUM [Concomitant]
  3. VITAMIN D [Concomitant]
  4. SOMALGEN [Concomitant]
  5. MEDILAX [Concomitant]
  6. ATARIN [Concomitant]

REACTIONS (3)
  - BONE OPERATION [None]
  - DISEASE PROGRESSION [None]
  - OSTEONECROSIS [None]
